FAERS Safety Report 21264990 (Version 2)
Quarter: 2023Q1

REPORT INFORMATION
  Report Type: Spontaneous
  Country: US (occurrence: US)
  Receive Date: 20220829
  Receipt Date: 20230227
  Transmission Date: 20230418
  Serious: No
  Sender: FDA-Public Use
  Company Number: US-GSK-US2022AMR124116

PATIENT
  Sex: Female

DRUGS (1)
  1. BREO ELLIPTA [Suspect]
     Active Substance: FLUTICASONE FUROATE\VILANTEROL TRIFENATATE
     Indication: Interstitial lung disease
     Dosage: 1 PUFF(S), QD, 200/25 UG

REACTIONS (6)
  - Cough [Unknown]
  - Breath sounds abnormal [Unknown]
  - Productive cough [Unknown]
  - Madarosis [Unknown]
  - Dysphonia [Unknown]
  - Product use in unapproved indication [Unknown]
